FAERS Safety Report 4620040-7 (Version None)
Quarter: 2005Q1

REPORT INFORMATION
  Report Type: 
  Country: None (occurrence: None)
  Receive Date: 20050322
  Receipt Date: 20050322
  Transmission Date: 20050727
  Serious: Yes (Disabling, Other)
  Sender: FDA-Public Use
  Company Number: None

PATIENT
  Age: 47 Year
  Sex: Male
  Weight: 88.4514 kg

DRUGS (1)
  1. LEVAQUIN [Suspect]
     Indication: SINUSITIS
     Dosage: 1   PER DAY   ORAL
     Route: 048
     Dates: start: 20050102, end: 20050112

REACTIONS (8)
  - BED REST [None]
  - HYPERSENSITIVITY [None]
  - MUSCLE SPASMS [None]
  - MYALGIA [None]
  - PAIN [None]
  - TENDON DISORDER [None]
  - TIC [None]
  - TREMOR [None]
